FAERS Safety Report 20722333 (Version 1)
Quarter: 2022Q2

REPORT INFORMATION
  Report Type: Spontaneous
  Country: US (occurrence: US)
  Receive Date: 20220418
  Receipt Date: 20220418
  Transmission Date: 20220720
  Serious: No
  Sender: FDA-Public Use
  Company Number: US-BRACCO-2022US00579

PATIENT
  Age: 50 Year
  Sex: Female

DRUGS (2)
  1. BARIUM SULFATE [Suspect]
     Active Substance: BARIUM SULFATE
     Indication: Swallow study
     Dosage: 150 ML, SINGLE
     Route: 048
     Dates: start: 20220202, end: 20220202
  2. E-Z-HD [Suspect]
     Active Substance: BARIUM SULFATE
     Indication: Swallow study
     Dosage: 10 ML, SINGLE
     Route: 048
     Dates: start: 20220202, end: 20220202

REACTIONS (2)
  - Hypersensitivity [Not Recovered/Not Resolved]
  - Product preparation issue [Not Recovered/Not Resolved]

NARRATIVE: CASE EVENT DATE: 20220202
